FAERS Safety Report 4784924-1 (Version None)
Quarter: 2005Q3

REPORT INFORMATION
  Report Type: 
  Country: None (occurrence: None)
  Receive Date: 20050930
  Receipt Date: 20050713
  Transmission Date: 20060218
  Serious: Yes (Hospitalization)
  Sender: FDA-Public Use
  Company Number: PHRM2005FR02383

PATIENT
  Age: 45 Year
  Sex: Male

DRUGS (2)
  1. LIORESAL [Concomitant]
     Indication: MUSCLE SPASTICITY
     Dosage: 350 A?G
     Route: 037
  2. TRILEPTAL [Suspect]
     Indication: NEURALGIA
     Dosage: 900 MG DAILY
     Route: 048
     Dates: start: 20050401

REACTIONS (2)
  - DRUG INEFFECTIVE [None]
  - PSYCHOGENIC PAIN DISORDER [None]
